FAERS Safety Report 6868501-4 (Version None)
Quarter: 2010Q3

REPORT INFORMATION
  Report Type: 
  Country: None (occurrence: None)
  Receive Date: 20100722
  Receipt Date: 20080723
  Transmission Date: 20110219
  Serious: No
  Sender: FDA-Public Use
  Company Number: US-PFIZER INC-2008042758

PATIENT
  Sex: Female
  Weight: 121 kg

DRUGS (10)
  1. CHANTIX [Suspect]
     Indication: SMOKING CESSATION THERAPY
     Route: 048
     Dates: start: 20080507
  2. SYNTHROID [Concomitant]
  3. VALSARTAN [Concomitant]
  4. PROVERA [Concomitant]
  5. CLARINEX [Concomitant]
  6. LEXAPRO [Concomitant]
  7. LORAZEPAM [Concomitant]
  8. IRON [Concomitant]
  9. POTASSIUM [Concomitant]
  10. MAGNESIUM [Concomitant]

REACTIONS (2)
  - ABDOMINAL PAIN UPPER [None]
  - CHILLS [None]
